FAERS Safety Report 14121702 (Version 3)
Quarter: 2017Q4

REPORT INFORMATION
  Report Type: Report from Study
  Country: JP (occurrence: JP)
  Receive Date: 20171024
  Receipt Date: 20171212
  Transmission Date: 20180321
  Serious: Yes (Hospitalization)
  Sender: FDA-Public Use
  Company Number: JP-PFIZER INC-2017451056

PATIENT
  Age: 65 Year
  Sex: Female
  Weight: 59 kg

DRUGS (3)
  1. METHOTREXATE. [Concomitant]
     Active Substance: METHOTREXATE
     Indication: RHEUMATOID ARTHRITIS
     Dosage: 8 MG, WEEKLY
     Route: 048
     Dates: end: 20170725
  2. PREDNISOLONE. [Concomitant]
     Active Substance: PREDNISOLONE
     Dosage: 6 MG, DAILY
     Route: 048
     Dates: end: 20170725
  3. XELJANZ [Suspect]
     Active Substance: TOFACITINIB CITRATE
     Indication: RHEUMATOID ARTHRITIS
     Dosage: 5 MG, 2X/DAY
     Route: 048
     Dates: start: 20170722, end: 20170725

REACTIONS (1)
  - Rhinitis allergic [Recovered/Resolved]

NARRATIVE: CASE EVENT DATE: 20170725
